FAERS Safety Report 22042764 (Version 1)
Quarter: 2023Q1

REPORT INFORMATION
  Report Type: Spontaneous
  Country: US (occurrence: US)
  Receive Date: 20230228
  Receipt Date: 20230228
  Transmission Date: 20230417
  Serious: No
  Sender: FDA-Public Use
  Company Number: US-BRISTOL-MYERS SQUIBB COMPANY-2023-028881

PATIENT
  Sex: Male
  Weight: 79.38 kg

DRUGS (3)
  1. ZEPOSIA [Suspect]
     Active Substance: OZANIMOD HYDROCHLORIDE
     Indication: Multiple sclerosis
     Route: 048
     Dates: start: 202208
  2. PREGABALIN [Concomitant]
     Active Substance: PREGABALIN
     Indication: Product used for unknown indication
  3. HYDROCODONE [Concomitant]
     Active Substance: HYDROCODONE
     Indication: Product used for unknown indication

REACTIONS (6)
  - Upper respiratory tract infection [Unknown]
  - Nasopharyngitis [Unknown]
  - Sinusitis [Unknown]
  - Cough [Unknown]
  - Illness [Unknown]
  - Vision blurred [Unknown]

NARRATIVE: CASE EVENT DATE: 20230222
